FAERS Safety Report 5501403-4 (Version None)
Quarter: 2007Q4

REPORT INFORMATION
  Report Type: 
  Country: None (occurrence: None)
  Receive Date: 20071018
  Receipt Date: 20070308
  Transmission Date: 20080405
  Serious: Yes (Death)
  Sender: FDA-Public Use
  Company Number: 2007020081

PATIENT
  Age: 61 Year
  Sex: Male

DRUGS (5)
  1. NEURONTIN [Suspect]
     Indication: PAIN
     Dosage: 1800 MG (DAILY), ORAL
     Route: 048
     Dates: start: 20030201, end: 20030827
  2. ULTRAM [Concomitant]
  3. OXAPROZIN [Concomitant]
  4. MIRAPEX [Concomitant]
  5. LEXAPRO [Concomitant]

REACTIONS (1)
  - COMPLETED SUICIDE [None]
